FAERS Safety Report 8599596-8 (Version None)
Quarter: 2012Q3

REPORT INFORMATION
  Report Type: 
  Country: None (occurrence: None)
  Receive Date: 20120808
  Receipt Date: 20120808
  Transmission Date: 20120928
  Serious: Yes (Other)
  Sender: FDA-Public Use
  Company Number: None

PATIENT
  Sex: Female
  Weight: 92.5338 kg

DRUGS (1)
  1. CIPROFLOXACIN [Suspect]
     Dates: start: 20111101, end: 20111110

REACTIONS (22)
  - FACIAL PAIN [None]
  - NECK PAIN [None]
  - JOINT STIFFNESS [None]
  - SUFFOCATION FEELING [None]
  - TENDON DISORDER [None]
  - HEADACHE [None]
  - BALANCE DISORDER [None]
  - PAIN IN EXTREMITY [None]
  - PAIN IN JAW [None]
  - DIZZINESS [None]
  - JOINT RANGE OF MOTION DECREASED [None]
  - VERTIGO [None]
  - BACK PAIN [None]
  - MUSCLE TWITCHING [None]
  - MUSCLE TIGHTNESS [None]
  - OROPHARYNGEAL PAIN [None]
  - NAUSEA [None]
  - EAR DISCOMFORT [None]
  - DEAFNESS [None]
  - ARTHRALGIA [None]
  - PHOTOPHOBIA [None]
  - SPEECH DISORDER [None]
